FAERS Safety Report 19304759 (Version 1)
Quarter: 2021Q2

REPORT INFORMATION
  Report Type: Spontaneous
  Country: ES (occurrence: ES)
  Receive Date: 20210526
  Receipt Date: 20210526
  Transmission Date: 20210717
  Serious: Yes (Life-Threatening)
  Sender: FDA-Public Use
  Company Number: ES-SUN PHARMACEUTICAL INDUSTRIES LTD-2021RR-297953

PATIENT
  Age: 23 Year
  Sex: Female

DRUGS (5)
  1. ISOTRETINOINA (37A) [Concomitant]
     Active Substance: ISOTRETINOIN
     Indication: ACNE
     Dosage: ()
     Route: 048
     Dates: start: 202012, end: 20210225
  2. PARACETAMOL [Suspect]
     Active Substance: ACETAMINOPHEN
     Indication: TONSILLITIS
     Dosage: 650 MILLIGRAM, QID
     Route: 048
     Dates: start: 20210220, end: 20210225
  3. METAMIZOL (111A) [Suspect]
     Active Substance: METAMIZOL SODIUM
     Indication: TONSILLITIS
     Dosage: 575 MILLIGRAM, QID
     Route: 048
     Dates: start: 20210223, end: 20210225
  4. AMOXICILLIN. [Suspect]
     Active Substance: AMOXICILLIN
     Indication: TONSILLITIS
     Dosage: 500 MILLIGRAM, QID
     Route: 048
     Dates: start: 20210220, end: 20210224
  5. ANTCON ?  ANTICONCEPTIVOS ORALES [Concomitant]
     Indication: CONTRACEPTION
     Dosage: ()
     Route: 048
     Dates: end: 20210225

REACTIONS (4)
  - Acute respiratory failure [Recovered/Resolved]
  - Hepatitis toxic [Recovering/Resolving]
  - Hyperbilirubinaemia [Recovering/Resolving]
  - SJS-TEN overlap [Recovered/Resolved]

NARRATIVE: CASE EVENT DATE: 20210223
